FAERS Safety Report 23339563 (Version 1)
Quarter: 2023Q4

REPORT INFORMATION
  Report Type: Spontaneous
  Country: None (occurrence: GB)
  Receive Date: 20231226
  Receipt Date: 20231226
  Transmission Date: 20240109
  Serious: Yes (Hospitalization)
  Sender: FDA-Public Use
  Company Number: GB-B.Braun Medical Inc.-2149714

PATIENT
  Sex: Male

DRUGS (4)
  1. ACETAMINOPHEN [Suspect]
     Active Substance: ACETAMINOPHEN
  2. ATORVASTATIN [Concomitant]
     Active Substance: ATORVASTATIN
  3. METHOTREXATE [Concomitant]
     Active Substance: METHOTREXATE
  4. SULFASALAZINE [Concomitant]
     Active Substance: SULFASALAZINE

REACTIONS (1)
  - Biliary sepsis [None]
